FAERS Safety Report 21808542 (Version 1)
Quarter: 2023Q1

REPORT INFORMATION
  Report Type: Spontaneous
  Country: GB (occurrence: GB)
  Receive Date: 20230103
  Receipt Date: 20230103
  Transmission Date: 20230418
  Serious: Yes (Hospitalization, Other)
  Sender: FDA-Public Use
  Company Number: GB-MHRA-MED-202212291413515740-PZCTW

PATIENT
  Age: 64 Year
  Sex: Female

DRUGS (6)
  1. ALENDRONATE SODIUM [Suspect]
     Active Substance: ALENDRONATE SODIUM
     Indication: Bone loss
     Dosage: 70 MILLIGRAM, WEEKLY
     Dates: start: 20191224, end: 20221228
  2. CALCIUM CARBONATE\CHOLECALCIFEROL [Concomitant]
     Active Substance: CALCIUM CARBONATE\CHOLECALCIFEROL
     Dosage: UNK
  3. ESOMEPRAZOLE [Concomitant]
     Active Substance: ESOMEPRAZOLE
     Dosage: UNK
  4. FAMOTIDINE [Concomitant]
     Active Substance: FAMOTIDINE
     Dosage: UNK
  5. ALGINIC ACID\ALUMINUM HYDROXIDE\SODIUM ALGINATE\SODIUM BICARBONATE [Concomitant]
     Active Substance: ALGINIC ACID\ALUMINUM HYDROXIDE\SODIUM ALGINATE\SODIUM BICARBONATE
     Dosage: UNK
  6. PROPRANOLOL [Concomitant]
     Active Substance: PROPRANOLOL HYDROCHLORIDE
     Dosage: UNK

REACTIONS (3)
  - Gastritis [Recovering/Resolving]
  - Vomiting [Recovering/Resolving]
  - Reflux gastritis [Recovering/Resolving]

NARRATIVE: CASE EVENT DATE: 20221228
